FAERS Safety Report 7475651-0 (Version None)
Quarter: 2011Q2

REPORT INFORMATION
  Report Type: 
  Country: None (occurrence: None)
  Receive Date: 20110504
  Receipt Date: 20110420
  Transmission Date: 20111010
  Serious: Yes (Life-Threatening, Hospitalization, Other)
  Sender: FDA-Public Use
  Company Number: 029978

PATIENT
  Sex: Female
  Weight: 75 kg

DRUGS (3)
  1. METHOTREXATE [Suspect]
     Indication: RHEUMATOID ARTHRITIS
     Dosage: (10 MG 1X/WEEK ORAL)
     Route: 048
     Dates: start: 20091217, end: 20110324
  2. FOLIC ACID [Concomitant]
  3. CIMZIA [Suspect]
     Indication: RHEUMATOID ARTHRITIS
     Dosage: (200 MG 1X/3 WEEKS SUBCUTANEOUS)
     Route: 058
     Dates: start: 20091222, end: 20110324

REACTIONS (1)
  - BREAST CANCER FEMALE [None]
